FAERS Safety Report 9941593 (Version 1)
Quarter: 2014Q1

REPORT INFORMATION
  Report Type: Report from Study
  Country: US (occurrence: US)
  Receive Date: 20140303
  Receipt Date: 20140303
  Transmission Date: 20141002
  Serious: No
  Sender: FDA-Public Use
  Company Number: US-ABBVIE-13P-163-1040126-00

PATIENT
  Age: 54 Year
  Sex: Male

DRUGS (5)
  1. HUMIRA [Suspect]
     Indication: RHEUMATOID ARTHRITIS
  2. HUMIRA [Suspect]
  3. OXYCONTIN [Suspect]
     Indication: PAIN
  4. HYDROCHLOROQUINE [Concomitant]
  5. PREDNISONE [Concomitant]
     Indication: PRODUCT USED FOR UNKNOWN INDICATION

REACTIONS (4)
  - Loss of consciousness [Recovering/Resolving]
  - Rheumatoid arthritis [Recovering/Resolving]
  - Periorbital haemorrhage [Recovering/Resolving]
  - Visual impairment [Recovering/Resolving]
